FAERS Safety Report 6615838-X (Version None)
Quarter: 2010Q1

REPORT INFORMATION
  Report Type: 
  Country: None (occurrence: None)
  Receive Date: 20100305
  Receipt Date: 20100224
  Transmission Date: 20100710
  Serious: Yes (Other)
  Sender: FDA-Public Use
  Company Number: US-PFIZER INC-2009244648

PATIENT
  Sex: Female
  Weight: 73 kg

DRUGS (3)
  1. ESTRING [Suspect]
     Dosage: UNK
     Dates: start: 20070101
  2. PROGESTERONE [Concomitant]
     Dosage: UNK
  3. TESTOSTERONE CIPIONATE [Concomitant]
     Dosage: UNK

REACTIONS (4)
  - CYSTITIS [None]
  - DRUG INEFFECTIVE [None]
  - KIDNEY INFECTION [None]
  - VULVOVAGINAL DISCOMFORT [None]
